FAERS Safety Report 6125791-3 (Version None)
Quarter: 2009Q1

REPORT INFORMATION
  Report Type: 
  Country: None (occurrence: None)
  Receive Date: 20090319
  Receipt Date: 20090319
  Transmission Date: 20090719
  Serious: Yes (Hospitalization, Disabling, Other)
  Sender: FDA-Public Use
  Company Number: None

PATIENT
  Age: 6 Year
  Sex: Male
  Weight: 21.7727 kg

DRUGS (3)
  1. SEROQUEL 50MG,   200 MG ASTRAZENECA LP [Suspect]
     Indication: DEPRESSION
     Dosage: 50MG 8AM/4PM AND 8PM PO
     Route: 048
     Dates: start: 20090223, end: 20090315
  2. . [Concomitant]
  3. METHYLPHENIDATE HYDROCHLORIDE [Suspect]
     Indication: ATTENTION DEFICIT/HYPERACTIVITY DISORDER
     Dosage: 5MG 8AM/12PM/4PM PO
     Route: 048
     Dates: start: 20090310, end: 20090316

REACTIONS (11)
  - ACTIVITIES OF DAILY LIVING IMPAIRED [None]
  - AKATHISIA [None]
  - ANOREXIA [None]
  - FEELING ABNORMAL [None]
  - IMPULSIVE BEHAVIOUR [None]
  - IRRITABILITY [None]
  - MUSCLE TWITCHING [None]
  - PSYCHOMOTOR HYPERACTIVITY [None]
  - SPEECH DISORDER [None]
  - THINKING ABNORMAL [None]
  - THIRST [None]
